FAERS Safety Report 25622231 (Version 1)
Quarter: 2025Q3

REPORT INFORMATION
  Report Type: Spontaneous
  Country: US (occurrence: US)
  Receive Date: 20250730
  Receipt Date: 20250730
  Transmission Date: 20251020
  Serious: No
  Sender: BIOGEN
  Company Number: US-BIOGEN-2025BI01297814

PATIENT
  Sex: Female

DRUGS (2)
  1. VUMERITY [Suspect]
     Active Substance: DIROXIMEL FUMARATE
     Indication: Multiple sclerosis
     Dosage: START OF THERAPY IN JUN OR JUL 2020 (EXACT DATE UNKNOWN), AM
     Route: 050
     Dates: start: 2020
  2. VUMERITY [Suspect]
     Active Substance: DIROXIMEL FUMARATE
     Dosage: PM
     Route: 050
     Dates: end: 20250201

REACTIONS (1)
  - White blood cell count decreased [Not Recovered/Not Resolved]
